FAERS Safety Report 23450121 (Version 5)
Quarter: 2024Q2

REPORT INFORMATION
  Report Type: Spontaneous
  Country: CA (occurrence: CA)
  Receive Date: 20240129
  Receipt Date: 20240424
  Transmission Date: 20240716
  Serious: Yes (Other)
  Sender: FDA-Public Use
  Company Number: CA-CELLTRION INC.-2024CA001958

PATIENT

DRUGS (11)
  1. INFLECTRA [Suspect]
     Active Substance: INFLIXIMAB-DYYB
     Indication: Neurosarcoidosis
     Dosage: 470 MG, Q 0, 2, 6 THEN EVERY 8 WEEKS
     Route: 042
     Dates: start: 20210816, end: 20220118
  2. INFLECTRA [Suspect]
     Active Substance: INFLIXIMAB-DYYB
     Dosage: 5 MG/KG, EVERY 8 WEEKS
     Route: 042
     Dates: start: 20220313
  3. INFLECTRA [Suspect]
     Active Substance: INFLIXIMAB-DYYB
     Dosage: 470 MG, Q 0, 2, 6 THEN EVERY 8 WEEKS
     Route: 042
     Dates: start: 20231123
  4. INFLECTRA [Suspect]
     Active Substance: INFLIXIMAB-DYYB
     Dosage: 480 MG, AFTER 12 WEEKS AND 5 DAYS (PRESCRIBED WAS EVERY 8 WEEKS)
     Route: 042
     Dates: start: 20240220
  5. INFLECTRA [Suspect]
     Active Substance: INFLIXIMAB-DYYB
     Dosage: 480 MG, AFTER 12 WEEKS AND 5 DAYS (PRESCRIBED WAS EVERY 8 WEEKS)
     Route: 042
     Dates: start: 20240220
  6. INFLECTRA [Suspect]
     Active Substance: INFLIXIMAB-DYYB
     Dosage: 480 MG, AFTER 12 WEEKS AND 5 DAYS (PRESCRIBED WAS EVERY 8 WEEKS)
     Route: 042
     Dates: start: 20240220
  7. INFLECTRA [Suspect]
     Active Substance: INFLIXIMAB-DYYB
     Dosage: 480 MG, AFTER 12 WEEKS AND 5 DAYS (PRESCRIBED WAS EVERY 8 WEEKS)
     Route: 042
     Dates: start: 20240220
  8. INFLECTRA [Suspect]
     Active Substance: INFLIXIMAB-DYYB
     Dosage: 480 MG, AFTER 12 WEEKS AND 5 DAYS (PRESCRIBED WAS EVERY 8 WEEKS)
     Route: 042
     Dates: start: 20240220
  9. INFLECTRA [Suspect]
     Active Substance: INFLIXIMAB-DYYB
     Dosage: 5 MG/KG, (475 MG) EVERY 8 WEEKS
     Route: 042
     Dates: start: 20240416
  10. METHOTREXATE [Concomitant]
     Active Substance: METHOTREXATE
     Dosage: 20 MG, UNK FREQUENCY
     Route: 065
  11. PREDNISONE [Concomitant]
     Active Substance: PREDNISONE
     Dosage: 1 DF

REACTIONS (5)
  - Haemoptysis [Recovered/Resolved]
  - Productive cough [Recovering/Resolving]
  - Arthralgia [Not Recovered/Not Resolved]
  - Pain in extremity [Not Recovered/Not Resolved]
  - Paraesthesia [Not Recovered/Not Resolved]
